FAERS Safety Report 22371427 (Version 1)
Quarter: 2023Q2

REPORT INFORMATION
  Report Type: Other
  Country: CN (occurrence: None)
  Receive Date: 20230526
  Receipt Date: 20230526
  Transmission Date: 20230722
  Serious: Yes (Hospitalization, Other)
  Sender: FDA-Public Use
  Company Number: CN-ROCHE-3354855

PATIENT

DRUGS (4)
  1. RITUXIMAB [Suspect]
     Active Substance: RITUXIMAB
     Indication: Glomerulonephritis membranous
     Route: 042
  2. METHYLPREDNISOLONE [Concomitant]
     Active Substance: METHYLPREDNISOLONE
  3. DEXAMETHASONE [Concomitant]
     Active Substance: DEXAMETHASONE
  4. ISOPROTERENOL [Concomitant]
     Active Substance: ISOPROTERENOL

REACTIONS (13)
  - Pneumonia [Unknown]
  - Herpes zoster [Unknown]
  - Pyrexia [Unknown]
  - Infusion related reaction [Recovered/Resolved]
  - Peripheral swelling [Unknown]
  - Arthralgia [Unknown]
  - Diarrhoea [Unknown]
  - Ileus [Unknown]
  - Nausea [Unknown]
  - Agitation [Unknown]
  - Weight decreased [Unknown]
  - Dizziness [Unknown]
  - Tinnitus [Unknown]
